FAERS Safety Report 4469227-7 (Version None)
Quarter: 2004Q4

REPORT INFORMATION
  Report Type: 
  Country: None (occurrence: None)
  Receive Date: 20041008
  Receipt Date: 20040929
  Transmission Date: 20050328
  Serious: Yes (Hospitalization, Other)
  Sender: FDA-Public Use
  Company Number: 200412981EU

PATIENT
  Age: 14 Year
  Sex: Female

DRUGS (5)
  1. LANTUS [Suspect]
     Indication: DIABETES MELLITUS INSULIN-DEPENDENT
     Route: 058
     Dates: start: 20040301, end: 20040701
  2. LANTUS [Suspect]
     Route: 058
     Dates: start: 20040907, end: 20040921
  3. CEFEPIME [Suspect]
     Indication: URINARY TRACT INFECTION
     Dates: start: 20040601
  4. CEFTRIAXONE SODIUM [Suspect]
     Indication: URINARY TRACT INFECTION
     Dates: start: 20040601
  5. HUMALOG [Concomitant]
     Indication: DIABETES MELLITUS INSULIN-DEPENDENT
     Route: 058
     Dates: start: 20040201

REACTIONS (10)
  - ANTI-INSULIN ANTIBODY [None]
  - CYTOMEGALOVIRUS TEST POSITIVE [None]
  - DIABETES MELLITUS INADEQUATE CONTROL [None]
  - DIABETIC KETOACIDOSIS [None]
  - EPSTEIN-BARR VIRUS ANTIBODY POSITIVE [None]
  - HEPATITIS TOXIC [None]
  - HYPERLIPIDAEMIA [None]
  - METABOLIC DISORDER [None]
  - RESPIRATORY TRACT INFECTION [None]
  - URINARY TRACT INFECTION [None]
